FAERS Safety Report 4874546-6 (Version None)
Quarter: 2006Q1

REPORT INFORMATION
  Report Type: 
  Country: None (occurrence: None)
  Receive Date: 20060106
  Receipt Date: 20050609
  Transmission Date: 20060701
  Serious: Yes (Other)
  Sender: FDA-Public Use
  Company Number: 200514919US

PATIENT
  Sex: Male
  Weight: 86.36 kg

DRUGS (3)
  1. LANTUS [Suspect]
     Indication: DIABETES MELLITUS INSULIN-DEPENDENT
     Dosage: DOSE UNIT: UNITS
     Dates: start: 20040101, end: 20050101
  2. HUMALOG [Concomitant]
     Dosage: DOSE: UNKNOWN
  3. INSULINE ULTRALENTE [Concomitant]
     Dosage: DOSE: UNKNOWN

REACTIONS (7)
  - BLOOD GLUCOSE DECREASED [None]
  - BLOOD GLUCOSE INCREASED [None]
  - HEADACHE [None]
  - HYPOAESTHESIA [None]
  - RENAL DISORDER [None]
  - RETINAL DISORDER [None]
  - VISION BLURRED [None]
